FAERS Safety Report 4882954-2 (Version None)
Quarter: 2006Q1

REPORT INFORMATION
  Report Type: 
  Country: None (occurrence: None)
  Receive Date: 20060112
  Receipt Date: 20060102
  Transmission Date: 20060701
  Serious: Yes (Other)
  Sender: FDA-Public Use
  Company Number: CIP06000007

PATIENT
  Age: 67 Year
  Sex: Male

DRUGS (2)
  1. ACTONEL [Suspect]
     Indication: OSTEOPOROSIS
     Dosage: 35 MG, ONCE ONLY, ORAL
     Route: 048
     Dates: start: 20051228, end: 20051228
  2. TRAMADOL HCL [Concomitant]

REACTIONS (2)
  - APNOEA [None]
  - HYPERPYREXIA [None]
